FAERS Safety Report 7940706-0 (Version None)
Quarter: 2011Q4

REPORT INFORMATION
  Report Type: 
  Country: None (occurrence: None)
  Receive Date: 20111128
  Receipt Date: 20111115
  Transmission Date: 20120403
  Serious: Yes (Hospitalization)
  Sender: FDA-Public Use
  Company Number: DE-RANBAXY-2009RR-23221

PATIENT
  Age: 60 Year
  Sex: Female
  Weight: 74 kg

DRUGS (15)
  1. VALORON ^GOEDECKE^ 50 [Concomitant]
     Indication: PAIN
     Dosage: 50 MG, BID, ^1-0-1^
     Route: 048
     Dates: start: 20081001
  2. VALORON ^GOEDECKE^ 50 [Concomitant]
     Dosage: UNK
     Route: 065
     Dates: start: 20090223
  3. IBUPROFEN [Suspect]
     Indication: PAIN
     Dosage: 400 MG, TID
     Route: 048
     Dates: start: 20081001, end: 20090102
  4. ENOXAPARIN SODIUM [Concomitant]
     Indication: PRODUCT USED FOR UNKNOWN INDICATION
     Dosage: UNK
     Route: 065
  5. PANTOZOL 40 [Concomitant]
     Indication: PROPHYLAXIS AGAINST GASTROINTESTINAL ULCER
     Dosage: 40 MG, QD
     Route: 048
     Dates: start: 20081001
  6. PREDNISOLONE [Concomitant]
     Indication: PRODUCT USED FOR UNKNOWN INDICATION
     Dosage: 60 MG, UNK
     Route: 065
     Dates: start: 20090119
  7. SALOFALK 500 [Concomitant]
     Indication: PRODUCT USED FOR UNKNOWN INDICATION
     Dosage: UNK
     Route: 065
     Dates: start: 20090223
  8. CELEBREX [Suspect]
     Indication: PAIN
     Dosage: 100 MG, TID
     Route: 048
     Dates: start: 20081001, end: 20090102
  9. SALOFALK 1000 [Concomitant]
     Indication: PRODUCT USED FOR UNKNOWN INDICATION
     Dosage: ^2-2-2^
     Route: 065
     Dates: start: 20090108
  10. VOLTAREN [Concomitant]
     Indication: PAIN
     Dosage: UNK
     Route: 065
     Dates: end: 20080601
  11. MONOEMBOLEX 8000 [Concomitant]
     Indication: ANTICOAGULANT THERAPY
  12. BISOPROLOL FUMARATE [Concomitant]
     Indication: HYPERTENSION
     Dosage: 5 MG, BID
     Route: 048
     Dates: start: 19890101
  13. FALITHROM ^HEXAL^ [Concomitant]
     Indication: ATRIAL FIBRILLATION
     Dosage: 1.5 MG, QD
     Route: 048
     Dates: start: 20081014, end: 20090213
  14. PANTOZOL 40 [Concomitant]
     Dosage: UNK
     Route: 065
     Dates: start: 20090223
  15. PREDNISOLONE [Concomitant]
     Dosage: 10 MG, UNK
     Route: 065
     Dates: start: 20090223

REACTIONS (1)
  - COLITIS [None]
